FAERS Safety Report 18140225 (Version 4)
Quarter: 2021Q2

REPORT INFORMATION
  Report Type: Report from Study
  Country: BR (occurrence: BR)
  Receive Date: 20200812
  Receipt Date: 20210624
  Transmission Date: 20210717
  Serious: Yes (Hospitalization)
  Sender: FDA-Public Use
  Company Number: PHHY2019BR104072

PATIENT
  Age: 59 Year
  Sex: Female

DRUGS (9)
  1. COSENTYX [Suspect]
     Active Substance: SECUKINUMAB
     Dosage: UNK
     Route: 065
     Dates: start: 202007
  2. COSENTYX [Suspect]
     Active Substance: SECUKINUMAB
     Dosage: UNK
     Route: 065
     Dates: end: 20200722
  3. COSENTYX [Suspect]
     Active Substance: SECUKINUMAB
     Dosage: 300 MG
     Route: 065
     Dates: start: 202007
  4. COSENTYX [Suspect]
     Active Substance: SECUKINUMAB
     Indication: PSORIASIS
     Dosage: UNK
     Route: 065
     Dates: start: 20181112
  5. COSENTYX [Suspect]
     Active Substance: SECUKINUMAB
     Dosage: UNK
     Route: 065
     Dates: start: 20190426
  6. COSENTYX [Suspect]
     Active Substance: SECUKINUMAB
     Dosage: UNK
     Route: 065
     Dates: start: 20200122
  7. COSENTYX [Suspect]
     Active Substance: SECUKINUMAB
     Dosage: 300 MG
     Route: 065
     Dates: start: 201811
  8. COSENTYX [Suspect]
     Active Substance: SECUKINUMAB
     Dosage: UNK
     Route: 065
     Dates: start: 201812
  9. COSENTYX [Suspect]
     Active Substance: SECUKINUMAB
     Dosage: UNK
     Route: 065
     Dates: start: 20200722

REACTIONS (22)
  - Anxiety [Unknown]
  - Hyperkeratosis [Unknown]
  - Product dose omission issue [Unknown]
  - Morton^s neuralgia [Not Recovered/Not Resolved]
  - Scab [Unknown]
  - Skin injury [Not Recovered/Not Resolved]
  - Nail disorder [Unknown]
  - Gait inability [Recovered/Resolved]
  - Influenza [Recovered/Resolved]
  - Memory impairment [Unknown]
  - Tonsillitis [Recovered/Resolved]
  - Psoriasis [Not Recovered/Not Resolved]
  - Skin lesion [Not Recovered/Not Resolved]
  - Nail psoriasis [Recovering/Resolving]
  - Nervousness [Recovered/Resolved]
  - Onycholysis [Unknown]
  - Inappropriate schedule of product administration [Unknown]
  - Erythema [Recovering/Resolving]
  - Morton^s neuralgia [Recovered/Resolved]
  - Burning sensation [Unknown]
  - Skin burning sensation [Recovering/Resolving]
  - Pruritus [Recovering/Resolving]

NARRATIVE: CASE EVENT DATE: 201903
